FAERS Safety Report 9045887 (Version 1)
Quarter: 2013Q1

REPORT INFORMATION
  Report Type: Report from Study
  Country: US (occurrence: US)
  Receive Date: 20130201
  Receipt Date: 20130201
  Transmission Date: 20140127
  Serious: No
  Sender: FDA-Public Use
  Company Number: US-ABBOTT-12P-163-1023545-00

PATIENT
  Age: 53 Year
  Sex: Female

DRUGS (8)
  1. HUMIRA [Suspect]
     Indication: PSORIASIS
     Dates: start: 201210
  2. OXCARBAZEPINE [Concomitant]
     Indication: EPILEPSY
     Dosage: 1.5 TABLETS, TWICE DAILY
  3. DILANTIN [Concomitant]
     Indication: EPILEPSY
  4. TOPAMAX [Concomitant]
     Indication: EPILEPSY
  5. TOPAMAX [Concomitant]
     Indication: MIGRAINE
  6. VIMPAT [Concomitant]
     Indication: EPILEPSY
     Dosage: 1/2 TABLET IN THE MORNING, 1/2 TABLET IN THE EVENING
  7. LASIX [Concomitant]
     Indication: BLOOD PRESSURE
     Dosage: DAILY
  8. ATENOLOL [Concomitant]
     Indication: VENTRICULAR TACHYCARDIA
     Dosage: DAILY

REACTIONS (1)
  - Psoriasis [Not Recovered/Not Resolved]
